FAERS Safety Report 8574466-X (Version None)
Quarter: 2012Q3

REPORT INFORMATION
  Report Type: 
  Country: None (occurrence: None)
  Receive Date: 20120806
  Receipt Date: 20120509
  Transmission Date: 20120928
  Serious: No
  Sender: FDA-Public Use
  Company Number: US-ABBOTT-12P-163-0934641-00

PATIENT
  Age: 23 Year
  Sex: Male
  Weight: 71.278 kg

DRUGS (1)
  1. DEPAKOTE ER [Suspect]
     Indication: HEADACHE
     Route: 048
     Dates: start: 20070101, end: 20100801

REACTIONS (12)
  - PAIN [None]
  - DIZZINESS [None]
  - FATIGUE [None]
  - DISTURBANCE IN ATTENTION [None]
  - VISUAL IMPAIRMENT [None]
  - SOMNOLENCE [None]
  - TEMPOROMANDIBULAR JOINT SYNDROME [None]
  - COORDINATION ABNORMAL [None]
  - ALOPECIA [None]
  - IRRITABLE BOWEL SYNDROME [None]
  - MEMORY IMPAIRMENT [None]
  - MENTAL IMPAIRMENT [None]
